FAERS Safety Report 13414469 (Version 3)
Quarter: 2017Q3

REPORT INFORMATION
  Report Type: Report from Study
  Country: US (occurrence: US)
  Receive Date: 20170406
  Receipt Date: 20170913
  Transmission Date: 20171127
  Serious: Yes (Other)
  Sender: FDA-Public Use
  Company Number: US-ROCHE-1914356

PATIENT
  Age: 67 Year
  Sex: Female
  Weight: 123.94 kg

DRUGS (25)
  1. ACTEMRA [Suspect]
     Active Substance: TOCILIZUMAB
     Dosage: ONGOING;YES
     Route: 058
     Dates: start: 20170315
  2. FOLIC ACID. [Concomitant]
     Active Substance: FOLIC ACID
     Route: 048
  3. SIMVASTATIN. [Concomitant]
     Active Substance: SIMVASTATIN
     Dosage: AT BEDTIME
     Route: 048
  4. PANTOPRAZOLE SODIUM. [Concomitant]
     Active Substance: PANTOPRAZOLE SODIUM
     Route: 048
  5. KETOCONAZOLE. [Concomitant]
     Active Substance: KETOCONAZOLE
     Dosage: EXTERNAL CREAM
     Route: 065
  6. DIPHENOXYLATE/ATROPINE [Concomitant]
     Active Substance: ATROPINE\DIPHENOXYLATE
     Dosage: 2.5-0.025 MG ??TAKE 1-2 TAB AFTER EACH STOOL
     Route: 048
  7. ACTEMRA [Suspect]
     Active Substance: TOCILIZUMAB
     Dosage: ONGOING;NO
     Route: 058
     Dates: start: 201610
  8. OXYGEN. [Concomitant]
     Active Substance: OXYGEN
     Dosage: APPLY TURBES;USE ALL NIGHT
     Route: 065
  9. PROBIOTIC (ENZYMES, INC) [Concomitant]
     Dosage: AS NEEDED
     Route: 065
  10. NYSTATIN. [Concomitant]
     Active Substance: NYSTATIN
     Dosage: 10000UNIT/GM;2-3 TIMES ON AFFECTED AREA
     Route: 065
  11. LORAZEPAM. [Concomitant]
     Active Substance: LORAZEPAM
     Dosage: EVERY NIGHT AT BEDTIME
     Route: 048
  12. MYRBETRIQ [Concomitant]
     Active Substance: MIRABEGRON
  13. ACTEMRA [Suspect]
     Active Substance: TOCILIZUMAB
     Dosage: ONGOING;NO
     Route: 058
     Dates: start: 2016, end: 20170219
  14. ACTEMRA [Suspect]
     Active Substance: TOCILIZUMAB
     Route: 058
     Dates: start: 201607
  15. CYANOCOBALAMIN. [Concomitant]
     Active Substance: CYANOCOBALAMIN
     Dosage: 100MCG/ML; ONCE A MONTH
     Route: 030
  16. FLINTSTONES VITAMINS [Concomitant]
  17. OPANA [Concomitant]
     Active Substance: OXYMORPHONE HYDROCHLORIDE
     Route: 048
  18. ACTEMRA [Suspect]
     Active Substance: TOCILIZUMAB
     Indication: RHEUMATOID ARTHRITIS
     Route: 058
     Dates: start: 201501, end: 201608
  19. OMEGA-3 FISH OIL FAT EMULSION INJECTION [Concomitant]
     Dosage: AS NEEDED
     Route: 065
  20. FLUOXETINE HCL [Concomitant]
     Active Substance: FLUOXETINE HYDROCHLORIDE
     Dosage: EVERY MORNING
     Route: 048
  21. LOSARTAN POTASSIUM. [Concomitant]
     Active Substance: LOSARTAN POTASSIUM
     Route: 048
  22. LEVOTHYROXINE SODIUM. [Concomitant]
     Active Substance: LEVOTHYROXINE SODIUM
     Route: 048
  23. ROPINIROLE HYDROCHLORIDE. [Concomitant]
     Active Substance: ROPINIROLE HYDROCHLORIDE
     Dosage: AS NEEDED FOR ANXIETY
     Route: 048
  24. METHOTREXATE. [Concomitant]
     Active Substance: METHOTREXATE
     Route: 048
  25. ACETAMINOPHEN W/OXYCODONE [Concomitant]
     Active Substance: ACETAMINOPHEN\OXYCODONE HYDROCHLORIDE
     Dosage: 10-325 MG??6-8 HOURS AS NEEDED
     Route: 065

REACTIONS (9)
  - Musculoskeletal stiffness [Unknown]
  - Complication associated with device [Not Recovered/Not Resolved]
  - Laceration [Recovered/Resolved]
  - Joint swelling [Recovering/Resolving]
  - Tendonitis [Unknown]
  - Gait disturbance [Not Recovered/Not Resolved]
  - Skin cancer [Recovered/Resolved]
  - Medical device site induration [Not Recovered/Not Resolved]
  - Peripheral swelling [Recovering/Resolving]

NARRATIVE: CASE EVENT DATE: 2015
